FAERS Safety Report 5612553-6 (Version None)
Quarter: 2008Q1

REPORT INFORMATION
  Report Type: 
  Country: None (occurrence: None)
  Receive Date: 20080204
  Receipt Date: 20080124
  Transmission Date: 20080703
  Serious: Yes (Other)
  Sender: FDA-Public Use
  Company Number: AU-JNJFOC-20080106349

PATIENT
  Age: 6 Decade
  Sex: Male

DRUGS (2)
  1. PREZISTA [Suspect]
     Indication: HIV INFECTION
     Route: 048
  2. MK-0518 [Interacting]
     Indication: HIV INFECTION
     Route: 065

REACTIONS (2)
  - DRUG INTERACTION [None]
  - NEUROPATHY PERIPHERAL [None]
